FAERS Safety Report 8420862-0 (Version None)
Quarter: 2012Q2

REPORT INFORMATION
  Report Type: 
  Country: None (occurrence: None)
  Receive Date: 20120531
  Receipt Date: 20120529
  Transmission Date: 20120825
  Serious: Yes (Other)
  Sender: FDA-Public Use
  Company Number: ADR-2012-00855

PATIENT
  Sex: Female

DRUGS (1)
  1. BACLOFEN [Suspect]
     Indication: PAIN

REACTIONS (11)
  - IMPLANT SITE PAIN [None]
  - SPEECH DISORDER [None]
  - SARCOIDOSIS [None]
  - MUSCLE SPASMS [None]
  - IMPLANT SITE MASS [None]
  - HYPOTENSION [None]
  - PAIN IN EXTREMITY [None]
  - INCISION SITE COMPLICATION [None]
  - HEADACHE [None]
  - DIZZINESS [None]
  - INFUSION SITE MASS [None]
